FAERS Safety Report 21723196 (Version 2)
Quarter: 2023Q1

REPORT INFORMATION
  Report Type: Spontaneous
  Country: IT (occurrence: None)
  Receive Date: 20221213
  Receipt Date: 20230207
  Transmission Date: 20230418
  Serious: Yes (Other)
  Sender: FDA-Public Use
  Company Number: 2022A400894

PATIENT
  Age: 73 Year
  Sex: Female

DRUGS (11)
  1. ESOMEPRAZOLE [Suspect]
     Active Substance: ESOMEPRAZOLE
     Route: 065
  2. OXALIPLATIN [Suspect]
     Active Substance: OXALIPLATIN
     Indication: Chemotherapy
     Dosage: 130 MILLIGRAM/SQ. METER/ 2-H INTRAVENOUS INFUSION OF OXALIPLATIN (130 MG/M2) ON DAY ONE; 195 MG O...
     Route: 042
  3. OXALIPLATIN [Suspect]
     Active Substance: OXALIPLATIN
     Indication: Chemotherapy
     Dosage: 100 MILLIGRAM/SQ. METER; DOSE OF OXALIPLATIN WAS REDUCED TO100 MG/M2
     Route: 042
  4. EZETIMIBE [Suspect]
     Active Substance: EZETIMIBE
     Indication: Lipids increased
     Route: 048
  5. CAPECITABINE [Suspect]
     Active Substance: CAPECITABINE
     Indication: Chemotherapy
     Dosage: 1000 MILLIGRAM/SQ. METER, BID; FROM DAY 1 TO 14, EVERY THREE WEEKS; 3000 MG OF CAPECITABINE DAILY
     Route: 048
  6. CAPECITABINE [Suspect]
     Active Substance: CAPECITABINE
     Indication: Chemotherapy
     Dosage: 625 MILLIGRAM/SQ. METER, BID; DOSE OF CAPECITABINE WAS REDUCED TO 625 MG/M2 TWICE DAILY
     Route: 048
  7. FLECAINIDE [Suspect]
     Active Substance: FLECAINIDE
     Route: 065
  8. VERAPAMIL [Suspect]
     Active Substance: VERAPAMIL HYDROCHLORIDE
     Route: 065
  9. LOVASTATIN [Suspect]
     Active Substance: LOVASTATIN
     Indication: Lipids increased
     Route: 065
  10. INDAPAMIDE [Suspect]
     Active Substance: INDAPAMIDE
     Route: 065
  11. APIXABAN [Suspect]
     Active Substance: APIXABAN
     Route: 065

REACTIONS (2)
  - Palmar-plantar erythrodysaesthesia syndrome [Recovering/Resolving]
  - Diarrhoea [Recovering/Resolving]
